FAERS Safety Report 17779077 (Version 1)
Quarter: 2020Q2

REPORT INFORMATION
  Report Type: Report from Study
  Country: US (occurrence: US)
  Receive Date: 20200513
  Receipt Date: 20200513
  Transmission Date: 20200714
  Serious: Yes (Hospitalization, Other)
  Sender: FDA-Public Use
  Company Number: US-MYLANLABS-2020M1046204

PATIENT
  Age: 19 Year
  Sex: Male
  Weight: 42 kg

DRUGS (11)
  1. CAMPTOSAR [Suspect]
     Active Substance: IRINOTECAN HYDROCHLORIDE
     Indication: EMBRYONAL RHABDOMYOSARCOMA
     Dosage: 50 MILLIGRAM/SQ. METER, (ON DAYS 1-5 OF CYCLES 2 AND 4)
     Route: 042
  2. GABAPENTIN. [Concomitant]
     Active Substance: GABAPENTIN
     Dosage: UNK
  3. DACTINOMYCIN [Suspect]
     Active Substance: DACTINOMYCIN
     Indication: EMBRYONAL RHABDOMYOSARCOMA
     Dosage: 0.05 MILLIGRAM/KILOGRAM, (14 KG (MAX DOSE 2.5MG)
     Route: 042
     Dates: start: 20191004, end: 20200228
  4. MESNA. [Concomitant]
     Active Substance: MESNA
     Dosage: UNK
  5. MARINOL                            /00003301/ [Concomitant]
     Active Substance: ALLOPURINOL
     Dosage: UNK
  6. CYCLOPHOSPHAMIDE. [Suspect]
     Active Substance: CYCLOPHOSPHAMIDE
     Indication: EMBRYONAL RHABDOMYOSARCOMA
     Dosage: 1200 MILLIGRAM/SQ. METER, (IV OVER 60 MINUTES ON DAY 1 OF CYCLES 1, 3)
     Route: 042
     Dates: start: 20191004, end: 20200228
  7. BACTRIM [Concomitant]
     Active Substance: SULFAMETHOXAZOLE\TRIMETHOPRIM
     Dosage: UNK
  8. MIRALAX [Concomitant]
     Active Substance: POLYETHYLENE GLYCOL 3350
     Dosage: UNK
  9. ZOFRAN [Concomitant]
     Active Substance: ONDANSETRON HYDROCHLORIDE
     Dosage: UNK
  10. TEMSIROLIMUS. [Suspect]
     Active Substance: TEMSIROLIMUS
     Indication: EMBRYONAL RHABDOMYOSARCOMA
     Dosage: 15 MILLIGRAM/SQ. METER, (10 KG (MAX DOSE 25MG)
     Route: 042
     Dates: start: 20191004, end: 20200306
  11. VINCRISTINE SULFATE. [Suspect]
     Active Substance: VINCRISTINE SULFATE
     Indication: EMBRYONAL RHABDOMYOSARCOMA
     Dosage: 1.5 MILLIGRAM/SQ. METER, (0.6 M2 (MAX DOSE 2MG)
     Route: 042
     Dates: start: 20191004, end: 20200306

REACTIONS (2)
  - Stomatitis [Recovering/Resolving]
  - Pharyngeal inflammation [Recovering/Resolving]

NARRATIVE: CASE EVENT DATE: 20200309
